FAERS Safety Report 17561020 (Version 1)
Quarter: 2020Q1

REPORT INFORMATION
  Report Type: Spontaneous
  Country: CA (occurrence: CA)
  Receive Date: 20200319
  Receipt Date: 20200319
  Transmission Date: 20200409
  Serious: Yes (Other)
  Sender: FDA-Public Use
  Company Number: CA-PFIZER INC-2020118187

PATIENT
  Sex: Female

DRUGS (5)
  1. HUMIRA [Suspect]
     Active Substance: ADALIMUMAB
     Indication: ANKYLOSING SPONDYLITIS
     Dosage: 40 MG, 1 EVERY 2 WEEKS
     Route: 058
  2. METHOTREXATE SODIUM. [Suspect]
     Active Substance: METHOTREXATE SODIUM
     Dosage: UNK
     Route: 048
  3. FOLIC ACID. [Concomitant]
     Active Substance: FOLIC ACID
     Dosage: 1 MG, 1X/DAY
     Route: 048
  4. KETOROLAC TROMETHAMINE. [Concomitant]
     Active Substance: KETOROLAC TROMETHAMINE
     Dosage: 10 MG, 3 EVERY 1 DAYS
     Route: 048
  5. METHOTREXATE SODIUM. [Suspect]
     Active Substance: METHOTREXATE SODIUM
     Dosage: 25 MG, WEEKLY
     Route: 058

REACTIONS (9)
  - Inappropriate schedule of product administration [Unknown]
  - Ankylosing spondylitis [Unknown]
  - Therapeutic product effect decreased [Unknown]
  - Nausea [Unknown]
  - Pain [Unknown]
  - Back disorder [Unknown]
  - Spinal pain [Unknown]
  - Sacroiliitis [Unknown]
  - Musculoskeletal stiffness [Unknown]
